FAERS Safety Report 16219379 (Version 1)
Quarter: 2019Q2

REPORT INFORMATION
  Report Type: Spontaneous
  Country: US (occurrence: US)
  Receive Date: 20190419
  Receipt Date: 20190419
  Transmission Date: 20190711
  Serious: No
  Sender: FDA-Public Use
  Company Number: US-PURDUE-USA-2019-0146430

PATIENT
  Sex: Female

DRUGS (3)
  1. METHYLPHENIDATE HYDROCHLORIDE. [Suspect]
     Active Substance: METHYLPHENIDATE HYDROCHLORIDE
     Indication: ATTENTION DEFICIT/HYPERACTIVITY DISORDER
     Dosage: 5 MG, DAILY
     Route: 048
     Dates: start: 20180921
  2. APTENSIO XR [Suspect]
     Active Substance: METHYLPHENIDATE HYDROCHLORIDE
     Indication: ATTENTION DEFICIT/HYPERACTIVITY DISORDER
     Dosage: 20 MG, UNK
     Route: 048
     Dates: start: 20180807
  3. AMPHETAMINE [Suspect]
     Active Substance: AMPHETAMINE
     Indication: ATTENTION DEFICIT/HYPERACTIVITY DISORDER
     Dosage: 2.5 MG, UNK
     Route: 065
     Dates: start: 20180807

REACTIONS (5)
  - Drug ineffective [Unknown]
  - Somnolence [Unknown]
  - Decreased appetite [Unknown]
  - Product use complaint [Unknown]
  - Insomnia [Unknown]
